FAERS Safety Report 17009551 (Version 2)
Quarter: 2019Q4

REPORT INFORMATION
  Report Type: Spontaneous
  Country: US (occurrence: US)
  Receive Date: 20191108
  Receipt Date: 20191121
  Transmission Date: 20200122
  Serious: No
  Sender: FDA-Public Use
  Company Number: US-PFIZER INC-2019480560

PATIENT
  Age: 62 Year
  Sex: Female

DRUGS (1)
  1. IBRANCE [Suspect]
     Active Substance: PALBOCICLIB
     Dosage: UNK

REACTIONS (6)
  - Vision blurred [Unknown]
  - Somnolence [Unknown]
  - Dry mouth [Unknown]
  - Alopecia [Unknown]
  - Dry skin [Unknown]
  - Gingival pain [Unknown]
